FAERS Safety Report 8308078-X (Version None)
Quarter: 2012Q2

REPORT INFORMATION
  Report Type: 
  Country: None (occurrence: None)
  Receive Date: 20120424
  Receipt Date: 20120419
  Transmission Date: 20120825
  Serious: Yes (Hospitalization)
  Sender: FDA-Public Use
  Company Number: BR-ROCHE-1029721

PATIENT
  Sex: Female
  Weight: 60 kg

DRUGS (13)
  1. CLONAZEPAM [Concomitant]
  2. VENLIFT [Concomitant]
  3. ALPRAZOLAM [Concomitant]
  4. ARCALION [Concomitant]
  5. LEVOFLOXACIN [Concomitant]
  6. DIMETICONE [Concomitant]
  7. PANTOPRAZOLE [Concomitant]
  8. MABTHERA [Suspect]
     Indication: SYSTEMIC LUPUS ERYTHEMATOSUS
     Route: 042
     Dates: start: 20100916, end: 20120217
  9. OMEPRAZOLE [Concomitant]
  10. TANDRILAX [Concomitant]
  11. CLARITHROMYCIN [Concomitant]
  12. TARGIFOR [Concomitant]
  13. PREDNISONE TAB [Concomitant]

REACTIONS (13)
  - DYSPNOEA [None]
  - BLOOD CHOLESTEROL INCREASED [None]
  - IMMUNODEFICIENCY [None]
  - LUNG INFECTION [None]
  - LOCALISED INFECTION [None]
  - INFLUENZA [None]
  - MALAISE [None]
  - NERVOUSNESS [None]
  - CHEST PAIN [None]
  - PAIN IN EXTREMITY [None]
  - LIMB INJURY [None]
  - BLOOD GLUCOSE DECREASED [None]
  - HEADACHE [None]
